FAERS Safety Report 7131490-1 (Version None)
Quarter: 2010Q4

REPORT INFORMATION
  Report Type: 
  Country: None (occurrence: None)
  Receive Date: 20101201
  Receipt Date: 20101129
  Transmission Date: 20110411
  Serious: Yes (Other)
  Sender: FDA-Public Use
  Company Number: CA-PFIZER INC-2010135218

PATIENT
  Age: 39 Year
  Sex: Female
  Weight: 59.864 kg

DRUGS (2)
  1. CHANTIX [Suspect]
     Indication: SMOKING CESSATION THERAPY
     Dosage: STANDARD
     Dates: start: 20100917, end: 20100926
  2. NASONEX [Concomitant]
     Dosage: UNK

REACTIONS (2)
  - RHABDOMYOLYSIS [None]
  - SOMNOLENCE [None]
